FAERS Safety Report 8833698 (Version 2)
Quarter: 2012Q4

REPORT INFORMATION
  Report Type: 
  Country: BR (occurrence: BR)
  Receive Date: 20121010
  Receipt Date: 20121114
  Transmission Date: 20130627
  Serious: Yes (Other)
  Sender: FDA-Public Use
  Company Number: BR-ASTRAZENECA-2012SE76658

PATIENT
  Age: 831 Month
  Sex: Male
  Weight: 88 kg

DRUGS (4)
  1. NEXIUM [Suspect]
     Indication: GASTROOESOPHAGEAL REFLUX DISEASE
     Route: 048
     Dates: start: 2009
  2. BRILINTA [Suspect]
     Indication: ANGINA PECTORIS
     Route: 048
     Dates: start: 201210
  3. CARDIZEM [Concomitant]
     Indication: HYPERTENSION
     Route: 048
  4. MONOCORDIL [Concomitant]
     Indication: HYPERTENSION
     Route: 048

REACTIONS (2)
  - Angina pectoris [Recovered/Resolved]
  - Drug ineffective [Recovered/Resolved]
